FAERS Safety Report 7786680-1 (Version None)
Quarter: 2011Q3

REPORT INFORMATION
  Report Type: 
  Country: None (occurrence: None)
  Receive Date: 20110929
  Receipt Date: 20110923
  Transmission Date: 20111222
  Serious: Yes (Other)
  Sender: FDA-Public Use
  Company Number: US-AMGEN-USASP2011049340

PATIENT
  Age: 56 Year
  Sex: Female

DRUGS (1)
  1. ENBREL [Suspect]
     Indication: RHEUMATOID ARTHRITIS
     Dosage: 50 MG, QWK
     Dates: start: 20110801

REACTIONS (6)
  - HEADACHE [None]
  - DRUG INEFFECTIVE [None]
  - VISION BLURRED [None]
  - ARTHRALGIA [None]
  - PAIN IN EXTREMITY [None]
  - GAIT DISTURBANCE [None]
